FAERS Safety Report 19871364 (Version 1)
Quarter: 2021Q3

REPORT INFORMATION
  Report Type: Spontaneous
  Country: US (occurrence: US)
  Receive Date: 20210922
  Receipt Date: 20210922
  Transmission Date: 20211014
  Serious: No
  Sender: FDA-Public Use
  Company Number: None

PATIENT
  Sex: Female

DRUGS (3)
  1. CYTARABINE. [Suspect]
     Active Substance: CYTARABINE
     Indication: ACUTE MYELOID LEUKAEMIA
     Route: 058
     Dates: start: 20210801
  2. XOSPATA [Concomitant]
     Active Substance: GILTERITINIB
     Dates: start: 20210825
  3. VENCLEXTA [Concomitant]
     Active Substance: VENETOCLAX
     Dates: start: 20210405

REACTIONS (5)
  - Immune system disorder [None]
  - Feeling abnormal [None]
  - Neutropenia [None]
  - Pyrexia [None]
  - Pneumonia [None]
